FAERS Safety Report 9437046 (Version 2)
Quarter: 2014Q2

REPORT INFORMATION
  Report Type: Spontaneous
  Country: US (occurrence: US)
  Receive Date: 20130802
  Receipt Date: 20140502
  Transmission Date: 20141212
  Serious: Yes (Other)
  Sender: FDA-Public Use
  Company Number: US-PFIZER INC-2013224204

PATIENT
  Age: 48 Year
  Sex: Female
  Weight: 55.33 kg

DRUGS (10)
  1. XELJANZ [Suspect]
     Dosage: 5 MG, 2X/DAY
     Route: 048
     Dates: end: 201307
  2. PREDNISONE [Concomitant]
     Dosage: 1 MG, UNK
     Route: 048
  3. RANITIDINE [Concomitant]
     Dosage: 150 MG, UNK
  4. FERROUS SULFATE [Concomitant]
     Dosage: 325 MG, UNK
  5. VITAMIN D [Concomitant]
     Dosage: 50000 IU, UNK
     Route: 048
  6. METOPROLOL TARTRATE [Concomitant]
     Dosage: 25 MG, UNK
  7. WARFARIN [Concomitant]
     Dosage: 4 MG, UNK
     Route: 048
  8. ASA [Concomitant]
     Dosage: 81 MG, UNK
     Route: 048
  9. COLACE [Concomitant]
     Dosage: 100 MG, UNK
  10. TYLENOL [Concomitant]
     Dosage: 325 MG, UNK
     Route: 048

REACTIONS (3)
  - Aortic valve disease [Unknown]
  - Mitral valve disease [Unknown]
  - Upper respiratory tract infection [Recovered/Resolved]
